FAERS Safety Report 5675998-4 (Version None)
Quarter: 2008Q1

REPORT INFORMATION
  Report Type: 
  Country: None (occurrence: None)
  Receive Date: 20080318
  Receipt Date: 20080311
  Transmission Date: 20080703
  Serious: Yes (Death)
  Sender: FDA-Public Use
  Company Number: CLOF-1000109

PATIENT
  Age: 74 Year
  Sex: Female

DRUGS (22)
  1. CLOLAR [Suspect]
     Indication: MYELOID LEUKAEMIA
     Dosage: 43 MG, QDX3, INTRAVENOUS; 87 MG, QDX3, INTRAVENOUS
     Route: 042
     Dates: start: 20080106, end: 20080108
  2. CLOLAR [Suspect]
     Indication: MYELOID LEUKAEMIA
     Dosage: 43 MG, QDX3, INTRAVENOUS; 87 MG, QDX3, INTRAVENOUS
     Route: 042
     Dates: start: 20080118, end: 20080120
  3. ARA-C (CYTARABINE) SOLUTION FOR INFUSION [Suspect]
     Indication: MYELOID LEUKAEMIA
     Dosage: 4300 MG, QD, INTRAVENOUS; 4340 MG, QD, INTRAVENOUS
     Route: 042
     Dates: start: 20080107, end: 20080108
  4. ARA-C (CYTARABINE) SOLUTION FOR INFUSION [Suspect]
     Indication: MYELOID LEUKAEMIA
     Dosage: 4300 MG, QD, INTRAVENOUS; 4340 MG, QD, INTRAVENOUS
     Route: 042
     Dates: start: 20080118, end: 20080120
  5. ZOLPIDEM TARTRATE [Concomitant]
  6. ACYCLOVIR [Concomitant]
  7. CEFEPIME [Concomitant]
  8. FLUCONAZOLE [Concomitant]
  9. FUROSEMIDE [Concomitant]
  10. HYDROCORTISONE SODIUM SUCCINATE [Concomitant]
  11. MAGNESIUM SULFATE [Concomitant]
  12. ONDANSETRON HCL [Concomitant]
  13. PANTOPRAZOLE SODIUM [Concomitant]
  14. POTASSIUM CHLORIDE [Concomitant]
  15. PROCHLORPERAZINE MALEATE (PROCHLORPERAZINE MALEATE) [Concomitant]
  16. SODIUM CHLORIDE 0.9% [Concomitant]
  17. TRIAMCINOLONE [Concomitant]
  18. POLYVINYL ALCOHOL (POLYVINYL ALCOHOL) [Concomitant]
  19. FEXOFENADINE HYDROCHLORIDE [Concomitant]
  20. DIPHENHYDRAMINE HCL [Concomitant]
  21. ACETAMINOPHEN [Concomitant]
  22. CALCIUM (ASCORBIC ACID, CALCIUM, COLECALCIFEROL) [Concomitant]

REACTIONS (9)
  - ACIDOSIS [None]
  - ACUTE RESPIRATORY DISTRESS SYNDROME [None]
  - ASPERGILLOSIS [None]
  - BONE MARROW FAILURE [None]
  - ELECTROMECHANICAL DISSOCIATION [None]
  - FEBRILE NEUTROPENIA [None]
  - HAEMOPTYSIS [None]
  - HAEMORRHAGE [None]
  - PNEUMONIA NECROTISING [None]
